FAERS Safety Report 8505310-4 (Version None)
Quarter: 2012Q3

REPORT INFORMATION
  Report Type: 
  Country: None (occurrence: None)
  Receive Date: 20120712
  Receipt Date: 20120709
  Transmission Date: 20120928
  Serious: Yes (Hospitalization)
  Sender: FDA-Public Use
  Company Number: US-PFIZER INC-2012164276

PATIENT
  Sex: Male
  Weight: 80.726 kg

DRUGS (6)
  1. COUMADIN [Concomitant]
     Indication: ANTICOAGULANT THERAPY
     Dosage: UNK
  2. LYRICA [Suspect]
     Indication: NEUROPATHY PERIPHERAL
     Dosage: 150 MG, 2X/DAY
     Route: 048
     Dates: start: 20120101
  3. ASPIRIN [Concomitant]
     Dosage: UNK
  4. GLIMEPIRIDE [Concomitant]
     Dosage: UNK
  5. LYRICA [Suspect]
  6. LYRICA [Suspect]
     Indication: PARAESTHESIA

REACTIONS (3)
  - PERIPHERAL ARTERIAL OCCLUSIVE DISEASE [None]
  - SKIN DISCOLOURATION [None]
  - PROTHROMBIN TIME RATIO ABNORMAL [None]
